FAERS Safety Report 16672728 (Version 2)
Quarter: 2019Q3

REPORT INFORMATION
  Report Type: Spontaneous
  Country: DE (occurrence: DE)
  Receive Date: 20190806
  Receipt Date: 20190924
  Transmission Date: 20191004
  Serious: Yes (Hospitalization, Other)
  Sender: FDA-Public Use
  Company Number: DE-GLAXOSMITHKLINE-DE2019140940

PATIENT
  Sex: Female
  Weight: 56 kg

DRUGS (1)
  1. DICLOFENAC (DICLOFENAC SODIUM) [Suspect]
     Active Substance: DICLOFENAC SODIUM
     Indication: INTERCOSTAL NEURALGIA
     Dosage: 17 MG, QD
     Route: 048
     Dates: start: 20190726

REACTIONS (3)
  - Anaphylactic shock [Recovered/Resolved]
  - Cardiovascular disorder [Recovered/Resolved]
  - Dyspnoea [Recovered/Resolved]

NARRATIVE: CASE EVENT DATE: 20190726
